FAERS Safety Report 24546209 (Version 1)
Quarter: 2024Q4

REPORT INFORMATION
  Report Type: Report from Study
  Country: US (occurrence: US)
  Receive Date: 20241024
  Receipt Date: 20241024
  Transmission Date: 20250114
  Serious: Yes (Other)
  Sender: JOHNSON AND JOHNSON
  Company Number: US-JNJFOC-20241052371

PATIENT
  Age: 28 Year
  Sex: Male

DRUGS (2)
  1. SPRAVATO [Suspect]
     Active Substance: ESKETAMINE
     Indication: Depression
     Dosage: ^56 MG, 2 TOTAL DOSES^
     Dates: start: 20240319, end: 20240320
  2. SPRAVATO [Suspect]
     Active Substance: ESKETAMINE
     Dosage: ^84 MG, 28 TOTAL DOSES^
     Dates: start: 20240328, end: 20241007

REACTIONS (4)
  - Suicidal ideation [Unknown]
  - Road traffic accident [Unknown]
  - Stress [Unknown]
  - Alcohol use [Unknown]

NARRATIVE: CASE EVENT DATE: 20240101
